FAERS Safety Report 8838403 (Version 2)
Quarter: 2012Q4

REPORT INFORMATION
  Report Type: 
  Country: US (occurrence: US)
  Receive Date: 20121012
  Receipt Date: 20121030
  Transmission Date: 20130627
  Serious: Yes (Hospitalization, Other)
  Sender: FDA-Public Use
  Company Number: US-VERTEX PHARMACEUTICAL INC.-2012-022498

PATIENT
  Age: 56 Year
  Sex: Male

DRUGS (4)
  1. INCIVEK [Suspect]
     Indication: HEPATITIS C
  2. RIBAVIRIN [Suspect]
  3. PEGINTERFERON [Suspect]
     Dosage: UNK
  4. PEGINTERFERON [Suspect]
     Dosage: 135 mcg, UNK

REACTIONS (5)
  - Staphylococcal bacteraemia [Unknown]
  - Drug reaction with eosinophilia and systemic symptoms [Recovered/Resolved]
  - Substance-induced psychotic disorder [Recovered/Resolved]
  - Rectal haemorrhage [None]
  - Drug ineffective [None]
